FAERS Safety Report 9591215 (Version 1)
Quarter: 2013Q4

REPORT INFORMATION
  Report Type: Spontaneous
  Country: US (occurrence: US)
  Receive Date: 20131003
  Receipt Date: 20131003
  Transmission Date: 20140711
  Serious: No
  Sender: FDA-Public Use
  Company Number: US-AMGEN-USASP2012081205

PATIENT
  Age: 59 Year
  Sex: Male

DRUGS (1)
  1. ENBREL [Suspect]
     Indication: PSORIASIS
     Dosage: 50 MG, BIWEEKLY
     Dates: start: 20120701

REACTIONS (4)
  - Pain [Recovered/Resolved]
  - Dizziness [Recovered/Resolved]
  - Renal cyst [Recovered/Resolved]
  - Psoriasis [Not Recovered/Not Resolved]
